FAERS Safety Report 19517257 (Version 1)
Quarter: 2021Q3

REPORT INFORMATION
  Report Type: Spontaneous
  Country: US (occurrence: US)
  Receive Date: 20210712
  Receipt Date: 20210712
  Transmission Date: 20211014
  Serious: Yes (Other)
  Sender: FDA-Public Use
  Company Number: US-SA-2021SA222250

PATIENT
  Age: 71 Year
  Sex: Male

DRUGS (2)
  1. RANITIDINE. [Suspect]
     Active Substance: RANITIDINE
     Indication: DYSPEPSIA
     Dosage: UNKNOWN
     Dates: start: 20160101, end: 20200905
  2. ZANTAC [Suspect]
     Active Substance: RANITIDINE HYDROCHLORIDE
     Indication: DYSPEPSIA
     Dosage: UNKNOWN
     Dates: start: 20160101, end: 20200905

REACTIONS (6)
  - Lung neoplasm malignant [Unknown]
  - Prostate cancer [Unknown]
  - Brain neoplasm malignant [Unknown]
  - Colorectal cancer [Unknown]
  - Bladder cancer [Unknown]
  - Hepatic cancer [Unknown]

NARRATIVE: CASE EVENT DATE: 2018
